FAERS Safety Report 4731130-2 (Version None)
Quarter: 2005Q3

REPORT INFORMATION
  Report Type: 
  Country: None (occurrence: None)
  Receive Date: 20050721
  Receipt Date: 20050502
  Transmission Date: 20060218
  Serious: No
  Sender: FDA-Public Use
  Company Number: 2005SP000553

PATIENT
  Sex: Female

DRUGS (3)
  1. LUNESTA [Suspect]
     Dosage: 2 MG; HS;ORAL
     Route: 048
     Dates: start: 20050430, end: 20050501
  2. SYNTHROID [Concomitant]
  3. AMBIEN [Concomitant]

REACTIONS (1)
  - DYSGEUSIA [None]
